FAERS Safety Report 6345741-4 (Version None)
Quarter: 2009Q3

REPORT INFORMATION
  Report Type: 
  Country: None (occurrence: None)
  Receive Date: 20090821
  Receipt Date: 20090612
  Transmission Date: 20100115
  Serious: No
  Sender: FDA-Public Use
  Company Number: 8047813

PATIENT
  Age: 77 Year
  Sex: Male
  Weight: 69 kg

DRUGS (10)
  1. CIMZIA [Suspect]
     Indication: CROHN'S DISEASE
     Dosage: 400 MG SC
     Route: 058
     Dates: start: 20090507
  2. PREDNISONE TAB [Concomitant]
  3. CORTENEMA [Concomitant]
  4. CALCIUM [Concomitant]
  5. SAW PALMETTO [Concomitant]
  6. SILENIUM [Concomitant]
  7. FOLIC ACID [Concomitant]
  8. DOXAZOSIN MESYLATE [Concomitant]
  9. AMLODIPINE [Concomitant]
  10. IRON [Concomitant]

REACTIONS (1)
  - BREATH ODOUR [None]
